FAERS Safety Report 9409220 (Version 1)
Quarter: 2013Q2

REPORT INFORMATION
  Report Type: Spontaneous
  Country: FR (occurrence: None)
  Receive Date: 20130429
  Receipt Date: 20130429
  Transmission Date: 20140414
  Serious: Yes (Hospitalization)
  Sender: FDA-Public Use
  Company Number: 7187038

PATIENT
  Age: 47 Year
  Sex: Female

DRUGS (1)
  1. LEVOTHYROX (LEVOTHYROXINE SODIUM) INFUSION [Suspect]
     Indication: PAPILLARY THYROID CANCER
     Route: 048

REACTIONS (3)
  - Blood thyroid stimulating hormone increased [None]
  - Hypothyroidism [None]
  - Treatment noncompliance [None]
